FAERS Safety Report 12269358 (Version 1)
Quarter: 2016Q2

REPORT INFORMATION
  Report Type: Spontaneous
  Country: ES (occurrence: ES)
  Receive Date: 20160414
  Receipt Date: 20160414
  Transmission Date: 20160815
  Serious: Yes (Other)
  Sender: FDA-Public Use
  Company Number: ES-ABBVIE-15P-144-1505615-00

PATIENT
  Sex: Female

DRUGS (1)
  1. DEPAKINE [Suspect]
     Active Substance: VALPROATE SODIUM
     Indication: EPILEPSY
     Route: 065
     Dates: start: 2001

REACTIONS (3)
  - Seizure [Unknown]
  - Pre-eclampsia [Unknown]
  - Exposure during pregnancy [Unknown]
